FAERS Safety Report 25370501 (Version 1)
Quarter: 2025Q2

REPORT INFORMATION
  Report Type: Spontaneous
  Country: US (occurrence: US)
  Receive Date: 20250528
  Receipt Date: 20250528
  Transmission Date: 20250716
  Serious: No
  Sender: SANOFI AVENTIS
  Company Number: US-SA-2025SA150119

PATIENT
  Age: 70 Year
  Sex: Female

DRUGS (12)
  1. DUPIXENT [Suspect]
     Active Substance: DUPILUMAB
     Indication: Nasal polyps
     Route: 058
     Dates: start: 20200413
  2. BUDESONIDE [Concomitant]
     Active Substance: BUDESONIDE
  3. FLUTICASONE [Concomitant]
     Active Substance: FLUTICASONE
  4. VITAMIN D NOS [Concomitant]
     Active Substance: CHOLECALCIFEROL\ERGOCALCIFEROL
  5. FAMOTIDINE [Concomitant]
     Active Substance: FAMOTIDINE
  6. VITAMIN B [Concomitant]
     Active Substance: VITAMIN B
  7. ITRACONAZOLE [Concomitant]
     Active Substance: ITRACONAZOLE
  8. SINGULAIR [Concomitant]
     Active Substance: MONTELUKAST SODIUM
  9. TETRACYCLINE [Concomitant]
     Active Substance: TETRACYCLINE
  10. TRAZODONE [Concomitant]
     Active Substance: TRAZODONE HYDROCHLORIDE
  11. AZELASTINE [Concomitant]
     Active Substance: AZELASTINE
  12. FLUOXETINE [Concomitant]
     Active Substance: FLUOXETINE HYDROCHLORIDE

REACTIONS (2)
  - Bronchial hyperreactivity [Unknown]
  - Sinusitis [Unknown]

NARRATIVE: CASE EVENT DATE: 20241001
